FAERS Safety Report 23937095 (Version 1)
Quarter: 2024Q2

REPORT INFORMATION
  Report Type: Spontaneous
  Country: FR (occurrence: FR)
  Receive Date: 20240604
  Receipt Date: 20240604
  Transmission Date: 20240715
  Serious: Yes (Other)
  Sender: FDA-Public Use
  Company Number: FR-PFIZER INC-202400182417

PATIENT

DRUGS (1)
  1. ABROCITINIB [Suspect]
     Active Substance: ABROCITINIB

REACTIONS (2)
  - Hepatic cytolysis [Unknown]
  - Dyslipidaemia [Unknown]
